FAERS Safety Report 6611937-7 (Version None)
Quarter: 2010Q1

REPORT INFORMATION
  Report Type: 
  Country: None (occurrence: None)
  Receive Date: 20100226
  Receipt Date: 20100226
  Transmission Date: 20100710
  Serious: Yes (Other)
  Sender: FDA-Public Use
  Company Number: None

PATIENT
  Age: 43 Year
  Sex: Female
  Weight: 61.2356 kg

DRUGS (1)
  1. ZICAM COLD REMEDY GEL SWAB ZINCUM GLUCOMICUM 2X ZICAM LLC, SCOTTSDALE [Suspect]
     Indication: NASOPHARYNGITIS
     Dosage: 1 MEDICATED SWAB 2/APPLICATON NASAL
     Route: 045
     Dates: start: 20070107, end: 20090717

REACTIONS (1)
  - PAROSMIA [None]
